FAERS Safety Report 6661651-7 (Version None)
Quarter: 2010Q1

REPORT INFORMATION
  Report Type: 
  Country: None (occurrence: None)
  Receive Date: 20100331
  Receipt Date: 20090323
  Transmission Date: 20100710
  Serious: No
  Sender: FDA-Public Use
  Company Number: US-BRISTOL-MYERS SQUIBB COMPANY-14557433

PATIENT
  Age: 6 Decade
  Sex: Male

DRUGS (1)
  1. ERBITUX [Suspect]
     Indication: COLORECTAL CANCER
     Dosage: LOADING DOSE 4 WEEKS AGO.

REACTIONS (3)
  - LIVER FUNCTION TEST ABNORMAL [None]
  - RASH [None]
  - RENAL FUNCTION TEST ABNORMAL [None]
